FAERS Safety Report 9060503 (Version 3)
Quarter: 2013Q2

REPORT INFORMATION
  Report Type: Report from Study
  Country: US (occurrence: US)
  Receive Date: 20130212
  Receipt Date: 20130626
  Transmission Date: 20140414
  Serious: Yes (Other)
  Sender: FDA-Public Use
  Company Number: US-ABBOTT-13P-163-1040805-00

PATIENT
  Age: 48 Year
  Sex: Female
  Weight: 62.2 kg

DRUGS (2)
  1. LUPRON DEPOT [Suspect]
     Indication: ADENOMYOSIS
     Route: 030
     Dates: start: 20121114, end: 20121114
  2. LUPRON DEPOT [Suspect]
     Indication: PELVIC PAIN

REACTIONS (2)
  - Vaginal haemorrhage [Recovered/Resolved]
  - Off label use [Unknown]
